FAERS Safety Report 5148541-6 (Version None)
Quarter: 2006Q4

REPORT INFORMATION
  Report Type: 
  Country: None (occurrence: None)
  Receive Date: 20060918
  Receipt Date: 20060816
  Transmission Date: 20070319
  Serious: Yes (Hospitalization)
  Sender: FDA-Public Use
  Company Number: US-JNJFOC-20060804395

PATIENT
  Age: 39 Year
  Sex: Female
  Weight: 75.2971 kg

DRUGS (5)
  1. ORTHO EVRA [Suspect]
     Indication: DRUG USE FOR UNKNOWN INDICATION
     Dates: start: 20021101, end: 20040423
  2. ALLEGRA [Concomitant]
  3. PRILOSEC [Concomitant]
  4. BETASERON [Concomitant]
  5. BACLOFEN [Concomitant]

REACTIONS (1)
  - PULMONARY EMBOLISM [None]
